FAERS Safety Report 13463220 (Version 3)
Quarter: 2017Q2

REPORT INFORMATION
  Report Type: Spontaneous
  Country: SA (occurrence: SA)
  Receive Date: 20170420
  Receipt Date: 20170522
  Transmission Date: 20170830
  Serious: Yes (Other)
  Sender: FDA-Public Use
  Company Number: CA-PFIZER INC-2017175825

PATIENT
  Age: 9 Year
  Sex: Male

DRUGS (28)
  1. PREDNISONE. [Concomitant]
     Active Substance: PREDNISONE
     Indication: T-CELL PROLYMPHOCYTIC LEUKAEMIA
     Dosage: UNK
  2. CYTOSINE ARABINOSIDE [Concomitant]
     Active Substance: CYTARABINE
     Indication: T-CELL PROLYMPHOCYTIC LEUKAEMIA
     Dosage: UNK (THREE DOSES)
  3. 6-MERCAPTOPURINE MONOHYDRATE [Concomitant]
     Active Substance: MERCAPTOPURINE
     Indication: T-CELL PROLYMPHOCYTIC LEUKAEMIA
     Dosage: UNK UNK, WEEKLY (CONTINUATION THERAPY, ALTERNATE)
  4. METHOTREXATE SODIUM. [Suspect]
     Active Substance: METHOTREXATE SODIUM
     Indication: T-CELL PROLYMPHOCYTIC LEUKAEMIA
     Dosage: UNK (TWO DOSES OF HIGH-DOSE, 2 G/M2)(WITH A SINGLE DOSE OF AGE-ADJUSTED TIT)
  5. METHOTREXATE SODIUM. [Suspect]
     Active Substance: METHOTREXATE SODIUM
     Dosage: UNK, WEEKLY (CONTINUATION THERAPY WITH 6-MERCEPTOPURINE, ALTERNATE)
  6. PREDNISONE. [Concomitant]
     Active Substance: PREDNISONE
     Dosage: UNK (2ND RE-INDUCED WITH PVDA AND RECEIVED WEEKLY FOUR DOSES OF TIT)
  7. DAUNOMYCIN /00128201/ [Concomitant]
     Active Substance: DAUNORUBICIN
     Dosage: UNK (RE-INDUCED WITH PVDA AND RECEIVED WEEKLY FOUR DOSES OF TIT)
  8. L-ASPARAGINASE [Concomitant]
     Active Substance: ASPARAGINASE
     Dosage: UNK, CYCLIC (TWO CYCLES OF HIGH-DOSE)(CAPPIZI)
  9. CYTOSINE ARABINOSIDE [Concomitant]
     Active Substance: CYTARABINE
     Dosage: UNK, 2X/WEEK (TWICE WEEKLY FOR FOUR DOSES)
  10. VINCRISTINE [Concomitant]
     Active Substance: VINCRISTINE
     Dosage: UNK UNK, WEEKLY (CONTINUATION THERAPY WITH L-ASPARAGINASE) ALTERNATE
  11. ETOPOSIDE. [Concomitant]
     Active Substance: ETOPOSIDE
     Indication: T-CELL PROLYMPHOCYTIC LEUKAEMIA
     Dosage: UNK (THREE DOSES)
  12. CYTOSINE ARABINOSIDE [Concomitant]
     Active Substance: CYTARABINE
     Dosage: UNK, CYCLIC (TWO CYCLES OF HIGH-DOSE)(CAPPIZI)
  13. CYCLOPHOSPHAMIDE. [Concomitant]
     Active Substance: CYCLOPHOSPHAMIDE
     Indication: T-CELL PROLYMPHOCYTIC LEUKAEMIA
     Dosage: UNK UNK, WEEKLY (ALTERNATE)
  14. VINCRISTINE [Concomitant]
     Active Substance: VINCRISTINE
     Dosage: UNK (2ND RE-INDUCED WITH PVDA AND RECEIVED WEEKLY FOUR DOSES OF TIT)
  15. DAUNOMYCIN /00128201/ [Concomitant]
     Active Substance: DAUNORUBICIN
     Indication: T-CELL PROLYMPHOCYTIC LEUKAEMIA
     Dosage: UNK
  16. DAUNOMYCIN /00128201/ [Concomitant]
     Active Substance: DAUNORUBICIN
     Dosage: UNK (2ND RE-INDUCED WITH PVDA AND RECEIVED WEEKLY FOUR DOSES OF TIT)
  17. L-ASPARAGINASE [Concomitant]
     Active Substance: ASPARAGINASE
     Dosage: UNK (2ND RE-INDUCED WITH PVDA AND RECEIVED WEEKLY FOUR DOSES OF TIT)
  18. TENIPOSIDE. [Concomitant]
     Active Substance: TENIPOSIDE
     Indication: T-CELL PROLYMPHOCYTIC LEUKAEMIA
     Dosage: UNK, 2X/WEEK (TWICE WEEKLY FOR FOUR DOSES)
  19. PREDNISONE. [Concomitant]
     Active Substance: PREDNISONE
     Dosage: UNK (RE-INDUCED WITH PVDA AND RECEIVED WEEKLY FOUR DOSES OF TIT)
  20. L-ASPARAGINASE [Concomitant]
     Active Substance: ASPARAGINASE
     Dosage: UNK (RE-INDUCED WITH PVDA AND RECEIVED WEEKLY FOUR DOSES OF TIT)
  21. CYTOSINE ARABINOSIDE [Concomitant]
     Active Substance: CYTARABINE
     Dosage: UNK UNK, WEEKLY (CONTINUATION THERAPY WITH METHOTREXATE) ALTERNATE
  22. METHOTREXATE SODIUM. [Suspect]
     Active Substance: METHOTREXATE SODIUM
     Dosage: UNK, WEEKLY (CONTINUATION THERAPY WITH CYTOSINE ARABINOSIDE, ALTERNATE)
  23. METHOTREXATE SODIUM. [Suspect]
     Active Substance: METHOTREXATE SODIUM
     Dosage: UNK
     Route: 037
  24. VINCRISTINE [Concomitant]
     Active Substance: VINCRISTINE
     Indication: T-CELL PROLYMPHOCYTIC LEUKAEMIA
     Dosage: UNK
  25. VINCRISTINE [Concomitant]
     Active Substance: VINCRISTINE
     Dosage: UNK (RE-INDUCED WITH PVDA AND RECEIVED WEEKLY FOUR DOSES OF TIT)
  26. L-ASPARAGINASE [Concomitant]
     Active Substance: ASPARAGINASE
     Indication: T-CELL PROLYMPHOCYTIC LEUKAEMIA
     Dosage: UNK
  27. L-ASPARAGINASE [Concomitant]
     Active Substance: ASPARAGINASE
     Dosage: UNK UNK, WEEKLY (CONTINUATION THERAPY WITH VINCRISTINE) ALTERNATE
  28. ETOPOSIDE. [Concomitant]
     Active Substance: ETOPOSIDE
     Dosage: UNK UNK, WEEKLY (CONTINUATION THERAPY WITH CYCLOPHOSPHAMIDE) ALTERNATE

REACTIONS (2)
  - Optic neuropathy [Recovered/Resolved]
  - Toxicity to various agents [Recovered/Resolved]
